FAERS Safety Report 22066478 (Version 2)
Quarter: 2023Q1

REPORT INFORMATION
  Report Type: Spontaneous
  Country: GB (occurrence: GB)
  Receive Date: 20230306
  Receipt Date: 20230309
  Transmission Date: 20230418
  Serious: Yes (Death, Life-Threatening)
  Sender: FDA-Public Use
  Company Number: None

PATIENT
  Age: 60 Year
  Sex: Male

DRUGS (3)
  1. PEMBROLIZUMAB [Suspect]
     Active Substance: PEMBROLIZUMAB
     Indication: Lung carcinoma cell type unspecified stage IV
     Dosage: 20/10/22, 10/11/22, 1/12/22, 22/12/22 AND 19/1/23
     Dates: start: 20221022, end: 20230119
  2. PEMETREXED [Concomitant]
     Active Substance: PEMETREXED
     Indication: Lung carcinoma cell type unspecified stage IV
     Dosage: GIVEN 20/10/22, 10/11/22, 1/12/22, 22/12/22
     Dates: start: 20221020, end: 20221222
  3. CARBOPLATIN [Concomitant]
     Active Substance: CARBOPLATIN
     Dosage: GIVEN 20/10/22, 10/11/22, 1/12/22, 22/12/22
     Dates: start: 20221020, end: 20221222

REACTIONS (1)
  - Pneumonitis [Fatal]

NARRATIVE: CASE EVENT DATE: 20230206
